FAERS Safety Report 19845997 (Version 1)
Quarter: 2021Q3

REPORT INFORMATION
  Report Type: Spontaneous
  Country: CN (occurrence: CN)
  Receive Date: 20210916
  Receipt Date: 20210916
  Transmission Date: 20211014
  Serious: Yes (Other)
  Sender: FDA-Public Use
  Company Number: CN-BAXTER-2021BAX028746

PATIENT
  Age: 64 Year
  Sex: Female
  Weight: 57 kg

DRUGS (4)
  1. 0.9% SODIUM CHLORIDE INJECTION [Suspect]
     Active Substance: SODIUM CHLORIDE
     Dosage: VINCRISTINE SULFATE FOR INJECTION 2 MG + 0.9% NS 100ML
     Route: 041
     Dates: start: 20210825, end: 20210825
  2. 0.9% SODIUM CHLORIDE INJECTION [Suspect]
     Active Substance: SODIUM CHLORIDE
     Indication: MEDICATION DILUTION
     Dosage: CYCLOPHOSPHAMIDE FOR INJECTION 0.8 G + 0.9% NS 100ML
     Route: 041
     Dates: start: 20210825, end: 20210825
  3. VINCRISTINE SULFATE. [Suspect]
     Active Substance: VINCRISTINE SULFATE
     Indication: HODGKIN^S DISEASE
     Dosage: VINCRISTINE SULFATE FOR INJECTION 2 MG + 0.9% NS 100ML
     Route: 041
     Dates: start: 20210825, end: 20210825
  4. ENDOXAN [Suspect]
     Active Substance: CYCLOPHOSPHAMIDE
     Indication: HODGKIN^S DISEASE
     Dosage: CYCLOPHOSPHAMIDE FOR INJECTION 0.8 G + 0.9% NS 100ML
     Route: 041
     Dates: start: 20210825, end: 20210825

REACTIONS (1)
  - Platelet count decreased [Unknown]

NARRATIVE: CASE EVENT DATE: 20210831
